FAERS Safety Report 4680066-4 (Version None)
Quarter: 2005Q2

REPORT INFORMATION
  Report Type: 
  Country: None (occurrence: None)
  Receive Date: 20050531
  Receipt Date: 20050517
  Transmission Date: 20051028
  Serious: Yes (Life-Threatening, Hospitalization)
  Sender: FDA-Public Use
  Company Number: 2005075718

PATIENT
  Age: 87 Year
  Sex: Female

DRUGS (2)
  1. CELEBREX [Suspect]
     Indication: OSTEOARTHRITIS
     Dosage: 200 MG (200 MG, 1 IN1 D), ORAL
     Route: 048
     Dates: start: 20041201, end: 20050423
  2. NORVASC [Concomitant]

REACTIONS (2)
  - PHLEBOTHROMBOSIS [None]
  - PULMONARY EMBOLISM [None]
